FAERS Safety Report 24094514 (Version 1)
Quarter: 2024Q3

REPORT INFORMATION
  Report Type: Spontaneous
  Country: HK (occurrence: HK)
  Receive Date: 20240716
  Receipt Date: 20240716
  Transmission Date: 20241016
  Serious: Yes (Death)
  Sender: ROCHE
  Company Number: HK-ROCHE-10000025000

PATIENT
  Age: 74 Year
  Sex: Male
  Weight: 87 kg

DRUGS (18)
  1. ERLOTINIB [Suspect]
     Active Substance: ERLOTINIB
     Indication: Blood pressure management
     Route: 065
  2. ERLOTINIB [Suspect]
     Active Substance: ERLOTINIB
     Indication: Constipation
  3. ERLOTINIB [Suspect]
     Active Substance: ERLOTINIB
     Indication: Gastric ulcer
  4. ERLOTINIB [Suspect]
     Active Substance: ERLOTINIB
     Indication: Hepatic cancer
  5. ERLOTINIB [Suspect]
     Active Substance: ERLOTINIB
     Indication: Hepatic cirrhosis
  6. ERLOTINIB [Suspect]
     Active Substance: ERLOTINIB
     Indication: Hypertension
  7. ERLOTINIB [Suspect]
     Active Substance: ERLOTINIB
     Indication: Prophylaxis
  8. SORAFENIB [Suspect]
     Active Substance: SORAFENIB
     Indication: Blood pressure management
     Route: 065
  9. SORAFENIB [Suspect]
     Active Substance: SORAFENIB
     Indication: Constipation
  10. SORAFENIB [Suspect]
     Active Substance: SORAFENIB
     Indication: Gastric ulcer
  11. SORAFENIB [Suspect]
     Active Substance: SORAFENIB
     Indication: Hepatic cancer
  12. SORAFENIB [Suspect]
     Active Substance: SORAFENIB
     Indication: Hepatic cirrhosis
  13. SORAFENIB [Suspect]
     Active Substance: SORAFENIB
     Indication: Hypertension
  14. SORAFENIB [Suspect]
     Active Substance: SORAFENIB
     Indication: Prophylaxis
  15. AMILORIDE [Concomitant]
     Active Substance: AMILORIDE
  16. PROPRANOLOL HYDROCHLORIDE [Concomitant]
     Active Substance: PROPRANOLOL HYDROCHLORIDE
  17. LACTULOSE [Concomitant]
     Active Substance: LACTULOSE
  18. PEPCID [Concomitant]
     Active Substance: FAMOTIDINE

REACTIONS (1)
  - Hepatic encephalopathy [Fatal]

NARRATIVE: CASE EVENT DATE: 20091228
